FAERS Safety Report 6456623-1 (Version None)
Quarter: 2009Q4

REPORT INFORMATION
  Report Type: 
  Country: None (occurrence: None)
  Receive Date: 20091125
  Receipt Date: 20091117
  Transmission Date: 20100525
  Serious: Yes (Other)
  Sender: FDA-Public Use
  Company Number: US-JNJFOC-20091103156

PATIENT
  Sex: Male

DRUGS (1)
  1. LEVAQUIN [Suspect]
     Indication: PNEUMONIA
     Route: 048
     Dates: start: 20091106, end: 20091106

REACTIONS (6)
  - AGGRESSION [None]
  - DRUG HYPERSENSITIVITY [None]
  - EPISTAXIS [None]
  - SUICIDAL IDEATION [None]
  - SUNBURN [None]
  - THERAPEUTIC RESPONSE UNEXPECTED [None]
